FAERS Safety Report 26114153 (Version 1)
Quarter: 2025Q4

REPORT INFORMATION
  Report Type: Spontaneous
  Country: US (occurrence: US)
  Receive Date: 20251202
  Receipt Date: 20251202
  Transmission Date: 20260118
  Serious: No
  Sender: PFIZER
  Company Number: US-PFIZER INC-202500235850

PATIENT
  Age: 44 Year

DRUGS (4)
  1. LEVOXYL [Suspect]
     Active Substance: LEVOTHYROXINE SODIUM
     Dosage: 88 UG, 2X/DAY
  2. LEVOXYL [Suspect]
     Active Substance: LEVOTHYROXINE SODIUM
     Dosage: 75 UG, 2X/DAY (1.5 X 25?MCG) IN THE MORNING AND EVENING
  3. LEVOXYL [Suspect]
     Active Substance: LEVOTHYROXINE SODIUM
     Dosage: 75 UG, 2X/DAY (1.5 X 25?MCG) AROUND 12?AM AND 5?AM
  4. LEVOXYL [Suspect]
     Active Substance: LEVOTHYROXINE SODIUM
     Dosage: HALF OF A 75?MCG TABLET

REACTIONS (6)
  - Generalised oedema [Unknown]
  - Brain fog [Unknown]
  - Tinnitus [Unknown]
  - Dizziness [Unknown]
  - Drug intolerance [Unknown]
  - Off label use [Unknown]
